FAERS Safety Report 22257690 (Version 2)
Quarter: 2023Q2

REPORT INFORMATION
  Report Type: Spontaneous
  Country: CA (occurrence: CA)
  Receive Date: 20230427
  Receipt Date: 20230621
  Transmission Date: 20230722
  Serious: Yes (Other)
  Sender: FDA-Public Use
  Company Number: CA-CELLTRION INC.-2023CA006492

PATIENT

DRUGS (10)
  1. INFLECTRA [Suspect]
     Active Substance: INFLIXIMAB-DYYB
     Indication: Colitis ulcerative
     Dosage: 500 MG FREQUENCY: 8 WEEKS
     Route: 042
     Dates: start: 20230224
  2. INFLECTRA [Suspect]
     Active Substance: INFLIXIMAB-DYYB
     Dosage: 500 MG FREQUENCY: 8 WEEKS
     Route: 042
     Dates: start: 20230322
  3. INFLECTRA [Suspect]
     Active Substance: INFLIXIMAB-DYYB
     Dosage: 500 MG FREQUENCY: 8 WEEKS
     Route: 042
     Dates: start: 20230322
  4. INFLECTRA [Suspect]
     Active Substance: INFLIXIMAB-DYYB
     Dosage: 500 MG FREQUENCY: 8 WEEKS
     Route: 042
     Dates: start: 20230322
  5. INFLECTRA [Suspect]
     Active Substance: INFLIXIMAB-DYYB
     Dosage: 500 MG FREQUENCY: 8 WEEKS
     Route: 042
     Dates: start: 20230322
  6. INFLECTRA [Suspect]
     Active Substance: INFLIXIMAB-DYYB
     Dosage: 500 MG FREQUENCY: 8 WEEKS
     Route: 042
     Dates: start: 20230419
  7. INFLECTRA [Suspect]
     Active Substance: INFLIXIMAB-DYYB
     Dosage: 500 MG, FREQUENCY: 8 WEEKS
     Route: 042
     Dates: start: 20230419
  8. INFLECTRA [Suspect]
     Active Substance: INFLIXIMAB-DYYB
     Dosage: 500 MG FREQUENCY: 8 WEEKS
     Route: 042
     Dates: start: 20230419
  9. INFLECTRA [Suspect]
     Active Substance: INFLIXIMAB-DYYB
     Dosage: 500 MG FREQUENCY: 8 WEEKS
     Route: 042
     Dates: start: 20230614
  10. INFLECTRA [Suspect]
     Active Substance: INFLIXIMAB-DYYB
     Dosage: 500 MG FREQUENCY: 8 WEEKS
     Route: 042
     Dates: start: 20230614

REACTIONS (4)
  - Condition aggravated [Not Recovered/Not Resolved]
  - Therapeutic response shortened [Unknown]
  - Off label use [Unknown]
  - Pain [Unknown]

NARRATIVE: CASE EVENT DATE: 20230101
